FAERS Safety Report 6559274-3 (Version None)
Quarter: 2010Q1

REPORT INFORMATION
  Report Type: 
  Country: None (occurrence: None)
  Receive Date: 20100129
  Receipt Date: 20090904
  Transmission Date: 20100710
  Serious: No
  Sender: FDA-Public Use
  Company Number: US-ABBOTT-09P-163-0592601-00

PATIENT
  Sex: Male
  Weight: 69.916 kg

DRUGS (2)
  1. HUMIRA [Suspect]
     Indication: CROHN'S DISEASE
     Dosage: DAY 1
     Dates: start: 20090819
  2. HUMIRA [Suspect]

REACTIONS (2)
  - INJECTION SITE HAEMATOMA [None]
  - MIGRAINE [None]
